FAERS Safety Report 10313465 (Version 1)
Quarter: 2014Q3

REPORT INFORMATION
  Report Type: Spontaneous
  Country: IT (occurrence: None)
  Receive Date: 20140716
  Receipt Date: 20140716
  Transmission Date: 20150326
  Serious: Yes (Hospitalization)
  Sender: FDA-Public Use
  Company Number: AUR-APL-2014-07371

PATIENT
  Age: 71 Year
  Sex: Female

DRUGS (1)
  1. AMOXICILLIN TABLET ( AMOXICILLIN) TABLET [Suspect]
     Active Substance: AMOXICILLIN
     Indication: TOOTH EXTRACTION
     Dosage: 1 DF, TOTAL, ORAL
     Route: 048
     Dates: start: 20060104, end: 20060104

REACTIONS (2)
  - Erythema [None]
  - Rash pruritic [None]

NARRATIVE: CASE EVENT DATE: 20060104
